FAERS Safety Report 5420516-9 (Version None)
Quarter: 2007Q3

REPORT INFORMATION
  Report Type: 
  Country: None (occurrence: None)
  Receive Date: 20070821
  Receipt Date: 20060825
  Transmission Date: 20080115
  Serious: No
  Sender: FDA-Public Use
  Company Number: US-KINGPHARMUSA00001-K200601090

PATIENT

DRUGS (3)
  1. CYTOMEL [Suspect]
     Indication: AUTOIMMUNE THYROIDITIS
     Dosage: 18.75 MCG, QD
     Route: 048
     Dates: start: 20040101
  2. CYTOMEL [Suspect]
     Route: 048
  3. UNITHROID [Concomitant]

REACTIONS (11)
  - ALOPECIA [None]
  - ANTIBODY TEST ABNORMAL [None]
  - DRUG EFFECT DECREASED [None]
  - DRY SKIN [None]
  - GENERAL PHYSICAL HEALTH DETERIORATION [None]
  - MULTIPLE ALLERGIES [None]
  - ONYCHOCLASIS [None]
  - PAIN [None]
  - SWELLING FACE [None]
  - THYROID PAIN [None]
  - WEIGHT INCREASED [None]
